FAERS Safety Report 4833054-9 (Version None)
Quarter: 2005Q4

REPORT INFORMATION
  Report Type: 
  Country: None (occurrence: None)
  Receive Date: 20051117
  Receipt Date: 20051107
  Transmission Date: 20060501
  Serious: Yes (Hospitalization, Other)
  Sender: FDA-Public Use
  Company Number: USA041183511

PATIENT
  Age: 79 Year
  Sex: Male
  Weight: 86 kg

DRUGS (7)
  1. FORTEO [Suspect]
     Indication: OSTEOPOROSIS
     Dosage: 20 UG/1 DAY
     Dates: start: 20040401
  2. CYMBALTA [Suspect]
     Indication: NERVOUSNESS
     Dosage: 60 MG DAY
     Dates: start: 20041104
  3. CITRACAL WITH VITAMIN D [Concomitant]
  4. ASPIRIN [Concomitant]
  5. HYZAAR [Concomitant]
  6. ZEBETA [Concomitant]
  7. PRAVACHOL [Concomitant]

REACTIONS (10)
  - ARTHRALGIA [None]
  - BACK PAIN [None]
  - DISORIENTATION [None]
  - DYSKINESIA [None]
  - DYSPNOEA [None]
  - HAEMORRHAGE [None]
  - MOBILITY DECREASED [None]
  - NERVOUSNESS [None]
  - SLEEP DISORDER DUE TO A GENERAL MEDICAL CONDITION [None]
  - SURGERY [None]
